FAERS Safety Report 7487932-5 (Version None)
Quarter: 2011Q2

REPORT INFORMATION
  Report Type: 
  Country: None (occurrence: None)
  Receive Date: 20110518
  Receipt Date: 20110426
  Transmission Date: 20111010
  Serious: Yes (Other)
  Sender: FDA-Public Use
  Company Number: US-BAYER-2011-000588

PATIENT
  Sex: Female
  Weight: 99.7 kg

DRUGS (6)
  1. YASMIN [Suspect]
     Indication: ACNE
     Dosage: UNK
     Dates: start: 20070101, end: 20080101
  2. FLEXERIL [Concomitant]
     Dosage: 10 MG, UNK
  3. BUSPAR [Concomitant]
     Dosage: 15 MG, UNK
  4. ANAPLEX DM [Concomitant]
  5. KEFLEX [Concomitant]
     Dosage: 500 MG, UNK
  6. IBUPROFEN [Concomitant]

REACTIONS (4)
  - GALLBLADDER DISORDER [None]
  - CHOLELITHIASIS [None]
  - INJURY [None]
  - PAIN [None]
